FAERS Safety Report 4299591-3 (Version None)
Quarter: 2004Q1

REPORT INFORMATION
  Report Type: 
  Country: None (occurrence: None)
  Receive Date: 20040217
  Receipt Date: 20040206
  Transmission Date: 20041129
  Serious: Yes (Hospitalization)
  Sender: FDA-Public Use
  Company Number: 04P-144-0249962-00

PATIENT
  Sex: Female

DRUGS (3)
  1. BIAXIN XL [Suspect]
     Indication: UPPER RESPIRATORY TRACT INFECTION
     Dosage: 500 MG, 1 IN 1 D, ORAL
     Route: 048
     Dates: start: 20040101, end: 20040101
  2. NSAI [Concomitant]
  3. ACETAMINOPHEN W/ CODEINE [Concomitant]

REACTIONS (3)
  - ABDOMINAL PAIN UPPER [None]
  - BLOOD AMYLASE INCREASED [None]
  - PYREXIA [None]
